FAERS Safety Report 19939613 (Version 2)
Quarter: 2021Q4

REPORT INFORMATION
  Report Type: Spontaneous
  Country: US (occurrence: None)
  Receive Date: 20211011
  Receipt Date: 20211116
  Transmission Date: 20220303
  Serious: No
  Sender: FDA-Public Use
  Company Number: 2021A745247

PATIENT
  Age: 1073 Month
  Sex: Male
  Weight: 77.1 kg

DRUGS (1)
  1. SYMBICORT [Suspect]
     Active Substance: BUDESONIDE\FORMOTEROL FUMARATE DIHYDRATE
     Indication: Cough
     Dosage: 160MCG/4.5MCG 1 PUFF ONCE DAILY
     Route: 055

REACTIONS (8)
  - Bradykinesia [Unknown]
  - Decreased activity [Unknown]
  - Walking aid user [Unknown]
  - Cough [Unknown]
  - Product prescribing issue [Unknown]
  - Drug ineffective [Not Recovered/Not Resolved]
  - Device use issue [Unknown]
  - Device delivery system issue [Unknown]

NARRATIVE: CASE EVENT DATE: 20210901
